FAERS Safety Report 19620821 (Version 1)
Quarter: 2021Q3

REPORT INFORMATION
  Report Type: Spontaneous
  Country: US (occurrence: US)
  Receive Date: 20210728
  Receipt Date: 20210728
  Transmission Date: 20211014
  Serious: Yes (Death)
  Sender: FDA-Public Use
  Company Number: None

PATIENT
  Sex: Female
  Weight: 58.95 kg

DRUGS (22)
  1. LIDOCAINE. [Concomitant]
     Active Substance: LIDOCAINE
  2. FUROSEMIDE. [Concomitant]
     Active Substance: FUROSEMIDE
  3. XARELTO [Concomitant]
     Active Substance: RIVAROXABAN
  4. ETOPOSIDE (MYLAN) [Suspect]
     Active Substance: ETOPOSIDE
     Indication: OVARIAN CANCER
     Route: 048
  5. ACETAMINOPHEN. [Concomitant]
     Active Substance: ACETAMINOPHEN
  6. BETAMETHASONE. [Concomitant]
     Active Substance: BETAMETHASONE
  7. IBUPROFREN [Concomitant]
  8. LEVOTHYROXINE. [Concomitant]
     Active Substance: LEVOTHYROXINE
  9. PREGABALIN. [Concomitant]
     Active Substance: PREGABALIN
  10. PROMETHAZINE?CODEINE [Concomitant]
     Active Substance: CODEINE PHOSPHATE\PROMETHAZINE
  11. SERTRALINE [Concomitant]
     Active Substance: SERTRALINE HYDROCHLORIDE
  12. ARANESP [Concomitant]
     Active Substance: DARBEPOETIN ALFA
  13. FENTANYL. [Concomitant]
     Active Substance: FENTANYL
  14. LIDODERM [Concomitant]
     Active Substance: LIDOCAINE
  15. ONDANSETRON [Concomitant]
     Active Substance: ONDANSETRON
  16. PANTOPRAZOLE [Concomitant]
     Active Substance: PANTOPRAZOLE
  17. PERCOCET [Concomitant]
     Active Substance: ACETAMINOPHEN\OXYCODONE HYDROCHLORIDE
  18. FOLIC ACID. [Concomitant]
     Active Substance: FOLIC ACID
  19. HYDROCORT?PRAMOXINE [Concomitant]
  20. OXYCODONE [Concomitant]
     Active Substance: OXYCODONE
  21. SENNA [Concomitant]
     Active Substance: SENNA LEAF\SENNOSIDES\SENNOSIDES A AND B
  22. FENTANYL TRANSDERMAL SYSTEM [Concomitant]
     Active Substance: FENTANYL

REACTIONS (1)
  - Death [None]
